FAERS Safety Report 23283981 (Version 1)
Quarter: 2023Q4

REPORT INFORMATION
  Report Type: Report from Study
  Country: GB (occurrence: GB)
  Receive Date: 20231211
  Receipt Date: 20231211
  Transmission Date: 20240109
  Serious: Yes (Other)
  Sender: FDA-Public Use
  Company Number: GB-SANDOZ-SDZ2023GB035575

PATIENT
  Sex: Male

DRUGS (1)
  1. HYRIMOZ [Suspect]
     Active Substance: ADALIMUMAB-ADAZ
     Indication: Colitis ulcerative
     Dosage: 40 MG, EOW
     Route: 058
     Dates: start: 20230911

REACTIONS (6)
  - Atrial fibrillation [Unknown]
  - Palpitations [Recovered/Resolved]
  - Alopecia [Unknown]
  - Gastrooesophageal reflux disease [Unknown]
  - Hyperaesthesia teeth [Unknown]
  - Restless legs syndrome [Unknown]
